FAERS Safety Report 4634123-9 (Version None)
Quarter: 2005Q2

REPORT INFORMATION
  Report Type: 
  Country: None (occurrence: None)
  Receive Date: 20050413
  Receipt Date: 20050407
  Transmission Date: 20051028
  Serious: Yes (Hospitalization)
  Sender: FDA-Public Use
  Company Number: GB-GLAXOSMITHKLINE-B0377275A

PATIENT
  Age: 72 Year
  Sex: Male
  Weight: 80 kg

DRUGS (2)
  1. AVODART [Suspect]
     Indication: BENIGN PROSTATIC HYPERPLASIA
     Dosage: 500MG UNKNOWN
     Route: 048
     Dates: start: 20050324, end: 20050327
  2. COSOPT [Concomitant]
     Indication: GLAUCOMA
     Dosage: 1DROP TWICE PER DAY
     Route: 047

REACTIONS (1)
  - CHEST PAIN [None]
